FAERS Safety Report 20556873 (Version 8)
Quarter: 2023Q4

REPORT INFORMATION
  Report Type: Spontaneous
  Country: US (occurrence: US)
  Receive Date: 20220307
  Receipt Date: 20231120
  Transmission Date: 20240110
  Serious: Yes (Hospitalization, Disabling, Other)
  Sender: FDA-Public Use
  Company Number: US-ORGANON-O2203USA000249

PATIENT
  Sex: Female

DRUGS (2)
  1. SINGULAIR [Suspect]
     Active Substance: MONTELUKAST SODIUM
     Indication: Asthma
     Dosage: 1 TAB(S), 1XDAILY HS
     Route: 048
     Dates: start: 199901, end: 2012
  2. SINGULAIR [Suspect]
     Active Substance: MONTELUKAST SODIUM
     Indication: Rhinitis allergic
     Dosage: 1 TAB(S), PO, 1XDAILY HS
     Route: 048

REACTIONS (18)
  - Neuropsychological symptoms [Not Recovered/Not Resolved]
  - Neurogenic bladder [Recovering/Resolving]
  - Neurogenic bowel [Not Recovered/Not Resolved]
  - Myelopathy [Not Recovered/Not Resolved]
  - Major depression [Recovered/Resolved]
  - Suicide attempt [Unknown]
  - Neuropathy peripheral [Recovering/Resolving]
  - Anxiety [Recovered/Resolved]
  - Suicidal ideation [Recovered/Resolved]
  - Suicide attempt [Unknown]
  - Intentional overdose [Unknown]
  - Migraine [Recovering/Resolving]
  - Back pain [Recovering/Resolving]
  - Sinusitis [Recovering/Resolving]
  - Abdominal pain upper [Unknown]
  - Headache [Unknown]
  - Dyspepsia [Unknown]
  - Intentional overdose [Unknown]

NARRATIVE: CASE EVENT DATE: 19990101
